FAERS Safety Report 6159947-0 (Version None)
Quarter: 2009Q2

REPORT INFORMATION
  Report Type: 
  Country: None (occurrence: None)
  Receive Date: 20090416
  Receipt Date: 20090402
  Transmission Date: 20091009
  Serious: Yes (Other)
  Sender: FDA-Public Use
  Company Number: 233598K09USA

PATIENT
  Age: 59 Year
  Sex: Male

DRUGS (4)
  1. REBIF [Suspect]
     Indication: MULTIPLE SCLEROSIS
     Dosage: 44 MCG, 3 IN 1 WEEKS, SUBCUTANEOUS
     Route: 058
     Dates: start: 20040809
  2. TOPAMAX [Concomitant]
  3. ASPIRIN [Concomitant]
  4. TYLENOL (COTYLENOL) [Concomitant]

REACTIONS (1)
  - CATARACT [None]
